FAERS Safety Report 19036092 (Version 1)
Quarter: 2021Q1

REPORT INFORMATION
  Report Type: Spontaneous
  Country: US (occurrence: US)
  Receive Date: 20210321
  Receipt Date: 20210321
  Transmission Date: 20210420
  Serious: Yes (Other)
  Sender: FDA-Public Use
  Company Number: US-TEVA-2021-US-1892430

PATIENT

DRUGS (2)
  1. VALSARTAN?ACTAVIS [Suspect]
     Active Substance: VALSARTAN
     Route: 065
  2. VALSARTAN?TEVA [Suspect]
     Active Substance: VALSARTAN
     Route: 065

REACTIONS (1)
  - Small intestine carcinoma [Unknown]
